FAERS Safety Report 14318264 (Version 3)
Quarter: 2018Q3

REPORT INFORMATION
  Report Type: Report from Study
  Country: PL (occurrence: PL)
  Receive Date: 20171222
  Receipt Date: 20180830
  Transmission Date: 20181010
  Serious: Yes (Hospitalization)
  Sender: FDA-Public Use
  Company Number: PL-CELLTRION INC.-2017PL011176

PATIENT

DRUGS (19)
  1. VITAMIN D                          /00107901/ [Concomitant]
     Active Substance: ERGOCALCIFEROL
     Indication: SUPPLEMENTATION THERAPY
     Dosage: 1200 IU, DAILY
     Route: 048
     Dates: start: 20141103
  2. NASONEX [Concomitant]
     Active Substance: MOMETASONE FUROATE
     Indication: RHINORRHOEA
     Dosage: 1 UNITS, BID
     Route: 045
     Dates: start: 20170627, end: 20170719
  3. REMSIMA [Suspect]
     Active Substance: INFLIXIMAB
     Dosage: 150 MG, SINGLE
     Route: 042
     Dates: start: 20160325, end: 20160325
  4. REMSIMA [Suspect]
     Active Substance: INFLIXIMAB
     Dosage: 200 MG, SINGLE
     Route: 042
     Dates: start: 20170428, end: 20170428
  5. REMSIMA [Suspect]
     Active Substance: INFLIXIMAB
     Dosage: 125 MG, SINGLE
     Route: 042
     Dates: start: 20160909, end: 20160909
  6. REMSIMA [Suspect]
     Active Substance: INFLIXIMAB
     Dosage: 200 MG, SINGLE
     Route: 042
     Dates: start: 20170104, end: 20170104
  7. AZATHIOPRINE. [Concomitant]
     Active Substance: AZATHIOPRINE
     Indication: CROHN^S DISEASE
     Dosage: 25 MG, DAILY
     Route: 048
     Dates: start: 20150127
  8. ENTEROL                            /00838001/ [Concomitant]
     Indication: SUPPLEMENTATION THERAPY
     Dosage: 1 DF, ONCE
     Dates: start: 20141127
  9. REMSIMA [Suspect]
     Active Substance: INFLIXIMAB
     Dosage: 150 MG, SINGLE
     Route: 042
     Dates: start: 20160129, end: 20160129
  10. REMSIMA [Suspect]
     Active Substance: INFLIXIMAB
     Dosage: 150 MG, SINGLE
     Route: 042
     Dates: start: 20170303, end: 20170303
  11. CALCIUM [Concomitant]
     Active Substance: CALCIUM
     Indication: SUPPLEMENTATION THERAPY
     Dosage: 500 MG, ONCE
     Route: 048
     Dates: start: 20141103
  12. REMSIMA [Suspect]
     Active Substance: INFLIXIMAB
     Dosage: 200 MG, SINGLE
     Route: 042
     Dates: start: 20160520, end: 20160520
  13. MESALAZINE [Concomitant]
     Active Substance: MESALAMINE
     Indication: CROHN^S DISEASE
     Dosage: 1 G, BID
     Route: 048
     Dates: start: 20140318
  14. REMSIMA [Suspect]
     Active Substance: INFLIXIMAB
     Dosage: 100 MG, SINGLE
     Route: 042
     Dates: start: 20160105, end: 20160105
  15. REMSIMA [Suspect]
     Active Substance: INFLIXIMAB
     Dosage: 200 MG, SINGLE
     Route: 042
     Dates: start: 20170628, end: 20170628
  16. ALANTAN [Concomitant]
     Indication: SKIN DISORDER
     Dosage: 1 G, DAILY
     Route: 061
     Dates: start: 20170404
  17. REMSIMA [Suspect]
     Active Substance: INFLIXIMAB
     Indication: CROHN^S DISEASE
     Dosage: 100 MG, SINGLE
     Route: 042
     Dates: start: 20151222, end: 20151222
  18. REMSIMA [Suspect]
     Active Substance: INFLIXIMAB
     Dosage: 125 MG, SINGLE
     Route: 042
     Dates: start: 20160715, end: 20160715
  19. REMSIMA [Suspect]
     Active Substance: INFLIXIMAB
     Dosage: 150 MG, SINGLE
     Route: 042
     Dates: start: 20161104, end: 20161104

REACTIONS (1)
  - Skin lesion [Recovering/Resolving]

NARRATIVE: CASE EVENT DATE: 20170805
